FAERS Safety Report 7296725-3 (Version None)
Quarter: 2011Q1

REPORT INFORMATION
  Report Type: 
  Country: None (occurrence: None)
  Receive Date: 20110216
  Receipt Date: 20110208
  Transmission Date: 20110831
  Serious: Yes (Other)
  Sender: FDA-Public Use
  Company Number: US-ABBOTT-11P-163-0704001-00

PATIENT
  Age: 50 Year
  Sex: Male
  Weight: 86.26 kg

DRUGS (12)
  1. DEPAKOTE [Suspect]
     Indication: BIPOLAR DISORDER
  2. ZARONTIN [Suspect]
     Indication: AMNESIA
  3. DILANTIN [Suspect]
     Indication: EPILEPSY
     Route: 048
  4. VALIUM [Suspect]
     Indication: AMNESIA
  5. PAXIL [Suspect]
     Indication: AMNESIA
  6. ULTRAM [Suspect]
     Indication: PANIC ATTACK
     Route: 048
     Dates: start: 20110114
  7. PHENOBARBITAL [Suspect]
     Indication: CONVULSION
  8. PHENOBARBITAL [Suspect]
     Indication: EPILEPSY
     Route: 048
  9. DEPAKOTE [Suspect]
     Indication: SKIN DISCOLOURATION
     Route: 048
     Dates: start: 20110110
  10. DILANTIN [Suspect]
     Indication: CONVULSION
  11. NEURONTIN [Suspect]
     Indication: CONVULSION
     Route: 048
  12. ULTRAM [Suspect]
     Indication: CONVULSION

REACTIONS (9)
  - BACK PAIN [None]
  - CONDITION AGGRAVATED [None]
  - DRUG DEPENDENCE [None]
  - CONVULSION [None]
  - PANIC ATTACK [None]
  - PAIN IN EXTREMITY [None]
  - AMNESIA [None]
  - HEAD INJURY [None]
  - BIPOLAR I DISORDER [None]
